FAERS Safety Report 16450272 (Version 1)
Quarter: 2019Q2

REPORT INFORMATION
  Report Type: Report from Study
  Country: US (occurrence: US)
  Receive Date: 20190619
  Receipt Date: 20190619
  Transmission Date: 20190711
  Serious: Yes (Hospitalization)
  Sender: FDA-Public Use
  Company Number: US-BEH-2019103079

PATIENT
  Age: 36 Year
  Sex: Male

DRUGS (1)
  1. HAEGARDA [Suspect]
     Active Substance: HUMAN C1-ESTERASE INHIBITOR
     Dosage: 5000 INTERNATIONAL UNIT
     Route: 065
     Dates: start: 201810, end: 20190607

REACTIONS (1)
  - Unevaluable event [Recovered/Resolved]

NARRATIVE: CASE EVENT DATE: 20190607
